FAERS Safety Report 21389208 (Version 1)
Quarter: 2022Q3

REPORT INFORMATION
  Report Type: Spontaneous
  Country: DE (occurrence: DE)
  Receive Date: 20220929
  Receipt Date: 20220929
  Transmission Date: 20221027
  Serious: Yes (Hospitalization)
  Sender: FDA-Public Use
  Company Number: DE-ADRED-04860-02

PATIENT
  Age: 87 Year
  Sex: Female

DRUGS (11)
  1. ESCITALOPRAM [Suspect]
     Active Substance: ESCITALOPRAM OXALATE
     Indication: Product used for unknown indication
     Dosage: 10 MILLIGRAM DAILY; 10 MG, 1-0-0-0
  2. COMIRNATY [Suspect]
     Active Substance: TOZINAMERAN
     Indication: Product used for unknown indication
     Dosage: 0.3 ML
     Route: 065
  3. HYGROTON [Suspect]
     Active Substance: CHLORTHALIDONE
     Indication: Product used for unknown indication
     Dosage: 12.5 MILLIGRAM DAILY; 25 MG, 0.5-0-0-0
  4. SOLIFENACIN [Concomitant]
     Active Substance: SOLIFENACIN
     Indication: Product used for unknown indication
     Dosage: 5 MILLIGRAM DAILY; 5 MG, 1-0-0-0
  5. GINKGO [Concomitant]
     Active Substance: GINKGO
     Indication: Product used for unknown indication
     Dosage: 1 DOSAGE FORMS DAILY; 1-0-0-0
  6. ALFACALCIDOL [Concomitant]
     Active Substance: ALFACALCIDOL
     Indication: Product used for unknown indication
     Dosage: 0.25 MCG, MONDAY WEDNESDAY FRIDAY MORNING ONE, ALFACALCIDOL (VITAMIN D)
  7. PANTOPRAZOLE SODIUM [Concomitant]
     Active Substance: PANTOPRAZOLE SODIUM
     Indication: Product used for unknown indication
     Dosage: 20 MILLIGRAM DAILY; 20 MG, 1-0-0-0
  8. CHOLECALCIFEROL [Concomitant]
     Active Substance: CHOLECALCIFEROL
     Indication: Product used for unknown indication
     Dosage: 4 GTT DAILY; 20000 IU/ML, FOUR DROPS IN THE MORNING, VIGANTOL OIL 20000IU/ML
  9. LEVOTHYROXINE SODIUM [Concomitant]
     Active Substance: LEVOTHYROXINE SODIUM
     Indication: Product used for unknown indication
     Dosage: 50 MICROGRAM DAILY; 50 MCG, 1-0-0-0
  10. ASPIRIN [Concomitant]
     Active Substance: ASPIRIN
     Indication: Product used for unknown indication
     Dosage: 100 MILLIGRAM DAILY; 100 MG, 1-0-0-0
  11. CANDESARTAN [Concomitant]
     Active Substance: CANDESARTAN
     Indication: Product used for unknown indication
     Dosage: 32 MILLIGRAM DAILY; 16 MG, 1-0-1-0

REACTIONS (7)
  - Erythema [Unknown]
  - General physical health deterioration [Unknown]
  - Asthenia [Unknown]
  - Hyponatraemia [Unknown]
  - Cognitive disorder [Unknown]
  - Pyrexia [Unknown]
  - Joint abscess [Unknown]
